FAERS Safety Report 8919223 (Version 1)
Quarter: 2012Q4

REPORT INFORMATION
  Report Type: 
  Country: CH (occurrence: CH)
  Receive Date: 20121121
  Receipt Date: 20121121
  Transmission Date: 20130627
  Serious: Yes (Other)
  Sender: FDA-Public Use
  Company Number: CH-GILEAD-2012-0064420

PATIENT
  Age: 69 Year
  Sex: Female

DRUGS (5)
  1. TRUVADA [Suspect]
     Route: 048
     Dates: start: 2010
  2. NORVIR [Suspect]
     Route: 048
     Dates: start: 2010
  3. ROSA CANINA [Concomitant]
     Indication: PAIN
     Route: 048
     Dates: start: 20101101, end: 20111101
  4. URTICA DIOICA [Concomitant]
     Indication: PAIN
     Route: 048
     Dates: start: 20101101, end: 20111101
  5. HARPAGOPHYTUM PROCUMBENS [Concomitant]

REACTIONS (1)
  - Cushingoid [Recovering/Resolving]
